FAERS Safety Report 4718061-9 (Version None)
Quarter: 2005Q3

REPORT INFORMATION
  Report Type: 
  Country: None (occurrence: None)
  Receive Date: 20050718
  Receipt Date: 20050411
  Transmission Date: 20060218
  Serious: No
  Sender: FDA-Public Use
  Company Number: 2005000713

PATIENT
  Age: 67 Year
  Sex: Female
  Weight: 70.3075 kg

DRUGS (7)
  1. TARCEVA [Suspect]
     Indication: NON-SMALL CELL LUNG CANCER
     Dosage: 150 MG (QD), ORAL
     Route: 048
     Dates: start: 20050124
  2. AROMASIN [Concomitant]
  3. MULTIVITAMIN [Concomitant]
  4. PREVACID [Concomitant]
  5. MECLIZINE [Concomitant]
  6. CALCIUM (CALCIUM) [Concomitant]
  7. AROMASIN [Concomitant]

REACTIONS (9)
  - DRY MOUTH [None]
  - DRY SKIN [None]
  - DYSPEPSIA [None]
  - EYE IRRITATION [None]
  - FATIGUE [None]
  - RASH [None]
  - VISION BLURRED [None]
  - VISUAL DISTURBANCE [None]
  - WEIGHT DECREASED [None]
